FAERS Safety Report 15531622 (Version 2)
Quarter: 2019Q1

REPORT INFORMATION
  Report Type: Spontaneous
  Country: GB (occurrence: GB)
  Receive Date: 20181019
  Receipt Date: 20190122
  Transmission Date: 20190417
  Serious: Yes (Hospitalization, Other)
  Sender: FDA-Public Use
  Company Number: GB-AUROBINDO-07-AUR-01587

PATIENT
  Age: 25 Year
  Sex: Female
  Weight: 68 kg

DRUGS (3)
  1. SERTRALINE FILM-COATED TABLETS 100MG [Suspect]
     Active Substance: SERTRALINE HYDROCHLORIDE
     Indication: ANTIDEPRESSANT THERAPY
     Dosage: 100 MILLIGRAM, DAILY
     Route: 065
     Dates: start: 200302, end: 200407
  2. IMPLANON [Interacting]
     Active Substance: ETONOGESTREL
     Indication: CONTRACEPTION
     Dosage: UNK, CONTINUING: NO
     Route: 065
     Dates: start: 20020509, end: 20041021
  3. IMPLANON [Interacting]
     Active Substance: ETONOGESTREL
     Dosage: UNK
     Route: 065

REACTIONS (4)
  - Ectopic pregnancy [Recovering/Resolving]
  - Pelvic pain [Unknown]
  - Amenorrhoea [Unknown]
  - Drug interaction [Unknown]

NARRATIVE: CASE EVENT DATE: 20040922
